FAERS Safety Report 9458422 (Version 2)
Quarter: 2013Q3

REPORT INFORMATION
  Report Type: Spontaneous
  Country: IT (occurrence: IT)
  Receive Date: 20130814
  Receipt Date: 20130828
  Transmission Date: 20140515
  Serious: Yes (Hospitalization)
  Sender: FDA-Public Use
  Company Number: PHHY2013IT086282

PATIENT
  Sex: Female

DRUGS (4)
  1. ALLOPURINOL [Suspect]
     Dosage: 1 DF, QD
     Route: 048
     Dates: start: 20130529, end: 20130623
  2. LIMPIDEX [Concomitant]
  3. ALDACTONE [Concomitant]
  4. FUROSEMIDE [Concomitant]

REACTIONS (1)
  - Toxic epidermal necrolysis [Recovering/Resolving]
